FAERS Safety Report 17067471 (Version 1)
Quarter: 2019Q4

REPORT INFORMATION
  Report Type: Spontaneous
  Country: US (occurrence: US)
  Receive Date: 20191122
  Receipt Date: 20191122
  Transmission Date: 20200122
  Serious: No
  Sender: FDA-Public Use
  Company Number: US-BIODELIVERY SCIENCES INTERNATIONAL-2019BDSI0608

PATIENT
  Sex: Male
  Weight: 51.53 kg

DRUGS (12)
  1. DIAZEPAM. [Concomitant]
     Active Substance: DIAZEPAM
     Indication: ANXIETY
     Dosage: 1 TO 2 PER DAY
     Route: 048
  2. CYCLOBENZAPRINE. [Concomitant]
     Active Substance: CYCLOBENZAPRINE
     Indication: MUSCLE RELAXANT THERAPY
     Route: 048
  3. BUPRENORPHINE. [Suspect]
     Active Substance: BUPRENORPHINE
     Indication: PAIN
     Dosage: UNKNOWN
     Route: 002
     Dates: start: 201812
  4. OXYCODONE [Concomitant]
     Active Substance: OXYCODONE
     Indication: PAIN
     Dosage: UP TO 5 IN 24 HOURS
     Route: 048
  5. CLOPIDOGREL [Concomitant]
     Active Substance: CLOPIDOGREL BISULFATE
     Indication: PRODUCT USED FOR UNKNOWN INDICATION
     Route: 048
  6. NO DRUG NAME [Concomitant]
     Active Substance: UNSPECIFIED INGREDIENT
     Indication: HEADACHE
     Dosage: ONCE A DAY, AS NEEDED
     Route: 048
  7. CARVEDILOL. [Concomitant]
     Active Substance: CARVEDILOL
     Indication: PRODUCT USED FOR UNKNOWN INDICATION
     Route: 048
  8. ATORVASTATIN [Concomitant]
     Active Substance: ATORVASTATIN
     Indication: BLOOD CHOLESTEROL ABNORMAL
     Route: 048
  9. GABAPENTIN. [Concomitant]
     Active Substance: GABAPENTIN
     Indication: NEURALGIA
     Route: 048
  10. OMEPRAZOLE. [Concomitant]
     Active Substance: OMEPRAZOLE
     Indication: GASTROINTESTINAL DISORDER
     Route: 048
  11. FLUOXETINE [Concomitant]
     Active Substance: FLUOXETINE HYDROCHLORIDE
     Indication: DEPRESSION
     Dosage: UNKNOWN
     Route: 048
  12. AMLODIPINE [Concomitant]
     Active Substance: AMLODIPINE BESYLATE
     Indication: HYPERTENSION
     Route: 048

REACTIONS (5)
  - Product packaging quantity issue [Unknown]
  - Product use issue [Recovered/Resolved]
  - Drug ineffective [Not Recovered/Not Resolved]
  - Product physical issue [Unknown]
  - Product packaging issue [Unknown]

NARRATIVE: CASE EVENT DATE: 2019
